FAERS Safety Report 9001412 (Version 1)
Quarter: 2013Q1

REPORT INFORMATION
  Report Type: Spontaneous
  Country: US (occurrence: US)
  Receive Date: 20130107
  Receipt Date: 20130107
  Transmission Date: 20140127
  Serious: Yes (Other)
  Sender: FDA-Public Use
  Company Number: US-009507513-1301USA001926

PATIENT
  Age: 47 Year
  Sex: Female

DRUGS (2)
  1. SINGULAIR [Suspect]
  2. XOLAIR [Suspect]
     Indication: ASTHMA

REACTIONS (2)
  - Leukocytoclastic vasculitis [Unknown]
  - Drug eruption [Unknown]
